FAERS Safety Report 7263546-7 (Version None)
Quarter: 2011Q1

REPORT INFORMATION
  Report Type: 
  Country: None (occurrence: None)
  Receive Date: 20110130
  Receipt Date: 20101206
  Transmission Date: 20110831
  Serious: No
  Sender: FDA-Public Use
  Company Number: US-ABBOTT-10P-163-0689609-00

PATIENT
  Sex: Male

DRUGS (3)
  1. HUMIRA [Suspect]
     Dosage: DAY 8
     Route: 058
  2. HUMIRA [Suspect]
  3. HUMIRA [Suspect]
     Indication: PSORIASIS
     Dosage: DAY 1
     Route: 058
     Dates: start: 20101119

REACTIONS (1)
  - INJECTION SITE HAEMATOMA [None]
